FAERS Safety Report 24443766 (Version 1)
Quarter: 2024Q4

REPORT INFORMATION
  Report Type: Spontaneous
  Country: CA (occurrence: CA)
  Receive Date: 20241016
  Receipt Date: 20241016
  Transmission Date: 20250114
  Serious: Yes (Other)
  Sender: MYLAN
  Company Number: CA-MYLANLABS-2024M1092868

PATIENT
  Age: 75 Year
  Sex: Male

DRUGS (7)
  1. NITROGLYCERIN [Interacting]
     Active Substance: NITROGLYCERIN
     Indication: Product used for unknown indication
     Dosage: UNK
     Route: 065
  2. DAPAGLIFLOZIN [Suspect]
     Active Substance: DAPAGLIFLOZIN
     Indication: Product used for unknown indication
     Dosage: UNK
     Route: 065
  3. ELIGARD [Suspect]
     Active Substance: LEUPROLIDE ACETATE
     Indication: Prostate cancer
     Dosage: 22.5 MILLIGRAM, 3XMONTHS(1 EVERY 3 MONTHS)
     Route: 058
  4. METOPROLOL [Suspect]
     Active Substance: METOPROLOL
     Indication: Product used for unknown indication
     Dosage: UNK
     Route: 065
  5. PERINDOPRIL [Suspect]
     Active Substance: PERINDOPRIL
     Indication: Product used for unknown indication
     Dosage: UNK
     Route: 065
  6. SPIRONOLACTONE [Suspect]
     Active Substance: SPIRONOLACTONE
     Indication: Product used for unknown indication
     Dosage: UNK
     Route: 065
  7. TICAGRELOR [Suspect]
     Active Substance: TICAGRELOR
     Indication: Product used for unknown indication
     Dosage: UNK
     Route: 065

REACTIONS (4)
  - Cardiac disorder [Unknown]
  - Inhibitory drug interaction [Unknown]
  - Injection site pain [Unknown]
  - Myocardial infarction [Unknown]
